FAERS Safety Report 5428424-4 (Version None)
Quarter: 2007Q3

REPORT INFORMATION
  Report Type: 
  Country: None (occurrence: None)
  Receive Date: 20070823
  Receipt Date: 20070105
  Transmission Date: 20080115
  Serious: Yes (Hospitalization, Other)
  Sender: FDA-Public Use
  Company Number: 2006US002171

PATIENT
  Age: 7 Year
  Sex: Female
  Weight: 17 kg

DRUGS (14)
  1. PROGRAF [Suspect]
     Indication: PROPHYLAXIS AGAINST TRANSPLANT REJECTION
     Dates: start: 20051203
  2. ZENAPAX [Suspect]
     Indication: RENAL TRANSPLANT
     Dosage: 35 MG, TOTAL DOSE, IV NOS, 25 MG, EVERY OTHER WEEK, IV NOS, 18 MG, TOTAL DOSE, IV NOS
     Route: 042
     Dates: start: 20051203, end: 20051203
  3. ZENAPAX [Suspect]
     Indication: RENAL TRANSPLANT
     Dosage: 35 MG, TOTAL DOSE, IV NOS, 25 MG, EVERY OTHER WEEK, IV NOS, 18 MG, TOTAL DOSE, IV NOS
     Route: 042
     Dates: start: 20051216, end: 20060130
  4. ZENAPAX [Suspect]
     Indication: RENAL TRANSPLANT
     Dosage: 35 MG, TOTAL DOSE, IV NOS, 25 MG, EVERY OTHER WEEK, IV NOS, 18 MG, TOTAL DOSE, IV NOS
     Route: 042
     Dates: start: 20060221, end: 20060221
  5. ZENAPAX [Suspect]
     Indication: RENAL TRANSPLANT
     Dosage: 35 MG, TOTAL DOSE, IV NOS, 25 MG, EVERY OTHER WEEK, IV NOS, 18 MG, TOTAL DOSE, IV NOS
     Route: 042
     Dates: start: 20060320, end: 20060515
  6. REGLAN [Concomitant]
  7. ASPIRIN [Concomitant]
  8. SEPTRA [Concomitant]
  9. IRON (IRON) [Concomitant]
  10. VALCYTE [Concomitant]
  11. PREVACID [Concomitant]
  12. MULTIVITAMIN [Concomitant]
  13. MAGNESIUM OXIDE (MAGNESIUM OXIDE) [Concomitant]
  14. VANCOMYCIN HYDROCHLORIDE [Concomitant]

REACTIONS (18)
  - ALANINE AMINOTRANSFERASE INCREASED [None]
  - ARTERIOVENOUS FISTULA [None]
  - ASPARTATE AMINOTRANSFERASE INCREASED [None]
  - BLOOD CHLORIDE DECREASED [None]
  - BLOOD CREATININE INCREASED [None]
  - BLOOD CULTURE POSITIVE [None]
  - BLOOD SODIUM DECREASED [None]
  - CENTRAL LINE INFECTION [None]
  - CORYNEBACTERIUM INFECTION [None]
  - CULTURE URINE POSITIVE [None]
  - DRUG LEVEL INCREASED [None]
  - HAEMATOCRIT DECREASED [None]
  - HAEMOGLOBIN DECREASED [None]
  - HEART RATE INCREASED [None]
  - PERIRENAL HAEMATOMA [None]
  - TRAUMATIC HAEMATOMA [None]
  - UPPER RESPIRATORY TRACT INFECTION [None]
  - WHITE BLOOD CELL COUNT DECREASED [None]
